FAERS Safety Report 18928254 (Version 1)
Quarter: 2021Q1

REPORT INFORMATION
  Report Type: Spontaneous
  Country: GB (occurrence: GB)
  Receive Date: 20210223
  Receipt Date: 20210223
  Transmission Date: 20210420
  Serious: Yes (Hospitalization, Disabling)
  Sender: FDA-Public Use
  Company Number: GB-JNJFOC-20210226482

PATIENT
  Age: 45 Year
  Sex: Female
  Weight: 63.5 kg

DRUGS (5)
  1. RISPERDAL CONSTA [Suspect]
     Active Substance: RISPERIDONE
  2. QUETIAPINE. [Concomitant]
     Active Substance: QUETIAPINE
     Indication: ILL-DEFINED DISORDER
  3. RISPERDAL CONSTA [Suspect]
     Active Substance: RISPERIDONE
     Indication: SCHIZOPHRENIA
     Dosage: SLOW RELEASE DEPOT INJECTION
     Route: 051
     Dates: start: 20120501, end: 20140501
  4. RISPERDAL CONSTA [Suspect]
     Active Substance: RISPERIDONE
  5. RISPERDAL CONSTA [Suspect]
     Active Substance: RISPERIDONE

REACTIONS (2)
  - Adverse event [Not Recovered/Not Resolved]
  - Insomnia [Not Recovered/Not Resolved]

NARRATIVE: CASE EVENT DATE: 20120601
